FAERS Safety Report 15221225 (Version 1)
Quarter: 2018Q3

REPORT INFORMATION
  Report Type: Spontaneous
  Country: US (occurrence: US)
  Receive Date: 20180731
  Receipt Date: 20180731
  Transmission Date: 20181010
  Serious: No
  Sender: FDA-Public Use
  Company Number: US-SA-2018SA206926

PATIENT
  Age: 46 Year
  Sex: Female

DRUGS (2)
  1. AUBAGIO [Suspect]
     Active Substance: TERIFLUNOMIDE
     Indication: MULTIPLE SCLEROSIS
     Dosage: 14 MG, QD
     Route: 048
     Dates: start: 20180508
  2. AUBAGIO [Suspect]
     Active Substance: TERIFLUNOMIDE
     Dosage: 4?5 TIMES PER WEEK
     Route: 048

REACTIONS (12)
  - Muscle spasms [Unknown]
  - Bladder disorder [Unknown]
  - Diarrhoea [Unknown]
  - Cognitive disorder [Unknown]
  - Temperature intolerance [Unknown]
  - Pain [Unknown]
  - Alopecia [Unknown]
  - Dizziness [Unknown]
  - Abdominal pain [Unknown]
  - Nausea [Unknown]
  - Vomiting [Unknown]
  - Fatigue [Unknown]
